FAERS Safety Report 10404672 (Version 2)
Quarter: 2014Q3

REPORT INFORMATION
  Report Type: Spontaneous
  Country: US (occurrence: US)
  Receive Date: 20140824
  Receipt Date: 20140824
  Transmission Date: 20150326
  Serious: Yes (Hospitalization, Other)
  Sender: FDA-Public Use
  Company Number: US-009507513-2009-189399-NL

PATIENT
  Sex: Female
  Weight: 70 kg

DRUGS (2)
  1. NUVARING [Suspect]
     Active Substance: ETHINYL ESTRADIOL\ETONOGESTREL
     Indication: CONTRACEPTION
     Dosage: REMOVE RING AFTER 21 DAYS, OFF FOR 7 DAYS THEN REPEAT
     Route: 067
     Dates: start: 20060116, end: 20060314
  2. TYLENOL [Concomitant]
     Active Substance: ACETAMINOPHEN
     Indication: MIGRAINE

REACTIONS (10)
  - Pneumonia [Unknown]
  - Acute respiratory failure [Unknown]
  - Lung infiltration [Unknown]
  - Pulmonary embolism [Recovered/Resolved]
  - Lymphadenopathy [Unknown]
  - Cardiac ventricular thrombosis [Unknown]
  - Renal failure acute [Unknown]
  - Atelectasis [Unknown]
  - Pleural effusion [Unknown]
  - Alpha haemolytic streptococcal infection [Unknown]

NARRATIVE: CASE EVENT DATE: 200604
